FAERS Safety Report 4615851-8 (Version None)
Quarter: 2005Q1

REPORT INFORMATION
  Report Type: 
  Country: None (occurrence: None)
  Receive Date: 20050311
  Receipt Date: 20041101
  Transmission Date: 20050727
  Serious: No
  Sender: FDA-Public Use
  Company Number: 2004-BP-11154BP

PATIENT
  Age: 70 Year
  Sex: Male

DRUGS (7)
  1. SPIRIVA [Suspect]
     Indication: CHRONIC OBSTRUCTIVE PULMONARY DISEASE
     Dosage: 18 MCG (18 MCG), IH
     Route: 055
  2. ZOCOR [Concomitant]
  3. THEO-DUR [Concomitant]
  4. CARDIZEM [Concomitant]
  5. ACETYLSALICYLIC ACID SRT [Concomitant]
  6. ALBUTEROL NEBULIZER (SALBUTAMOL) [Concomitant]
  7. COMBIVENT [Concomitant]

REACTIONS (1)
  - DRUG INEFFECTIVE [None]
